FAERS Safety Report 5237684-4 (Version None)
Quarter: 2007Q1

REPORT INFORMATION
  Report Type: 
  Country: None (occurrence: None)
  Receive Date: 20070214
  Receipt Date: 20070131
  Transmission Date: 20070707
  Serious: Yes (Hospitalization)
  Sender: FDA-Public Use
  Company Number: DE-ELI_LILLY_AND_COMPANY-DE200702000054

PATIENT
  Age: 80 Year
  Sex: Female

DRUGS (1)
  1. CYMBALTA [Suspect]
     Indication: DEPRESSION
     Dosage: 90 MG, DAILY (1/D)
     Route: 048
     Dates: start: 20060101

REACTIONS (4)
  - FALL [None]
  - FEMORAL NECK FRACTURE [None]
  - HYPONATRAEMIA [None]
  - SYNCOPE [None]
